FAERS Safety Report 4300861-0 (Version None)
Quarter: 2004Q1

REPORT INFORMATION
  Report Type: 
  Country: None (occurrence: None)
  Receive Date: 20040218
  Receipt Date: 20031119
  Transmission Date: 20041129
  Serious: No
  Sender: FDA-Public Use
  Company Number: 2003-08-1323

PATIENT
  Sex: Female

DRUGS (2)
  1. PEG-INTRON [Suspect]
     Dosage: SUBCUTANEOUS
     Route: 058
     Dates: start: 20030601
  2. REBETOL [Suspect]
     Dosage: ORAL
     Route: 048
     Dates: start: 20030601

REACTIONS (3)
  - ALOPECIA [None]
  - DYSGEUSIA [None]
  - SKIN DISORDER [None]
